FAERS Safety Report 11055936 (Version 1)
Quarter: 2015Q2

REPORT INFORMATION
  Report Type: Spontaneous
  Country: US (occurrence: US)
  Receive Date: 20150422
  Receipt Date: 20150422
  Transmission Date: 20150821
  Serious: No
  Sender: FDA-Public Use
  Company Number: US-SA-2015SA011456

PATIENT
  Sex: Female

DRUGS (2)
  1. ADDERALL [Concomitant]
     Active Substance: AMPHETAMINE ASPARTATE\AMPHETAMINE SULFATE\DEXTROAMPHETAMINE SACCHARATE\DEXTROAMPHETAMINE SULFATE
  2. LEMTRADA [Suspect]
     Active Substance: ALEMTUZUMAB
     Indication: MULTIPLE SCLEROSIS
     Route: 065
     Dates: start: 201501

REACTIONS (9)
  - Asthenia [Unknown]
  - Cold sweat [Unknown]
  - Fatigue [Unknown]
  - Feeling abnormal [Unknown]
  - Back pain [Unknown]
  - Formication [Unknown]
  - Tinnitus [Unknown]
  - Nausea [Unknown]
  - Dizziness [Unknown]
